FAERS Safety Report 9470591 (Version 1)
Quarter: 2013Q3

REPORT INFORMATION
  Report Type: Spontaneous
  Country: TR (occurrence: None)
  Receive Date: 20130814
  Receipt Date: 20130814
  Transmission Date: 20140515
  Serious: Yes (Death)
  Sender: FDA-Public Use
  Company Number: 2013P1017342

PATIENT
  Sex: 0

DRUGS (3)
  1. LIDOCAINE [Suspect]
     Route: 048
  2. CHLORPHENIRAMINE [Suspect]
     Route: 048
  3. DIPYRONE [Suspect]
     Route: 048

REACTIONS (2)
  - Completed suicide [None]
  - Intentional overdose [None]
